FAERS Safety Report 4350939-0 (Version None)
Quarter: 2004Q2

REPORT INFORMATION
  Report Type: 
  Country: None (occurrence: None)
  Receive Date: 20040428
  Receipt Date: 20040416
  Transmission Date: 20050107
  Serious: Yes (Other)
  Sender: FDA-Public Use
  Company Number: 2004018388

PATIENT
  Sex: Male

DRUGS (4)
  1. LIPITOR [Suspect]
     Indication: HYPERLIPIDAEMIA
     Dosage: 10 (DAILY), ORAL
     Route: 048
     Dates: start: 20031218
  2. DILANTIN [Suspect]
     Indication: EPILEPSY
     Dosage: 300 MG (TID)
     Dates: start: 19500101
  3. PHENOBARBITAL TAB [Concomitant]
  4. TEGRETOL [Concomitant]

REACTIONS (1)
  - CONVULSION [None]
